FAERS Safety Report 6278747-4 (Version None)
Quarter: 2009Q3

REPORT INFORMATION
  Report Type: 
  Country: None (occurrence: None)
  Receive Date: 20090721
  Receipt Date: 20090710
  Transmission Date: 20100115
  Serious: Yes (Other)
  Sender: FDA-Public Use
  Company Number: 236984K09USA

PATIENT
  Age: 42 Year
  Sex: Male

DRUGS (7)
  1. REBIF [Suspect]
     Indication: MULTIPLE SCLEROSIS
     Dosage: 44 MCG, 3 IN 1 WEEKS, SUBCUTANEOUS
     Route: 058
     Dates: start: 20061101, end: 20090701
  2. CLONAZEPAM [Suspect]
  3. LUNESTA [Suspect]
  4. OXYCODONE HCL [Suspect]
  5. METHOCARBAMOL [Suspect]
  6. EFFEXOR [Concomitant]
  7. PROVIGIL [Concomitant]

REACTIONS (6)
  - ACCIDENTAL OVERDOSE [None]
  - ALCOHOL USE [None]
  - DEPRESSED LEVEL OF CONSCIOUSNESS [None]
  - INTENTIONAL OVERDOSE [None]
  - SUICIDAL IDEATION [None]
  - SUICIDE ATTEMPT [None]
